FAERS Safety Report 26045989 (Version 1)
Quarter: 2025Q4

REPORT INFORMATION
  Report Type: Spontaneous
  Country: EU (occurrence: EU)
  Receive Date: 20251114
  Receipt Date: 20251114
  Transmission Date: 20260118
  Serious: Yes (Other)
  Sender: RANBAXY
  Company Number: EU-MINISAL02-1050919

PATIENT
  Age: 29 Year
  Sex: Female

DRUGS (4)
  1. OLANZAPINE [Suspect]
     Active Substance: OLANZAPINE
     Indication: Product used for unknown indication
     Dosage: 2 EMPTY BLISTERS OF 14 TABLETS OF OLANZAPINE 5 MG: 140 MG 2 EMPTY BLISTERS OF 14 TABLETS OF OLANZAPI
     Route: 048
     Dates: start: 20250719, end: 20250719
  2. TRAZODONE HYDROCHLORIDE [Suspect]
     Active Substance: TRAZODONE HYDROCHLORIDE
     Indication: Product used for unknown indication
     Dosage: 1 EMPTY BLISTER 15 TABLETS OF TRITTICO 75 MG: 1125 MG
     Route: 048
     Dates: start: 20250719, end: 20250719
  3. FLURAZEPAM [Suspect]
     Active Substance: FLURAZEPAM HYDROCHLORIDE
     Indication: Product used for unknown indication
     Dosage: 3 EMPTY BLISTERS OF 15 TABLETS OF FLURAZEPAM 30 MG: 1350 MG
     Route: 048
     Dates: start: 20250719, end: 20250719
  4. DELORAZEPAM [Suspect]
     Active Substance: DELORAZEPAM
     Indication: Product used for unknown indication
     Dosage: 1 EMPTY BLISTER 10 TABLETS OF DELORAZEPAM 2 MG: 20 MG
     Route: 048
     Dates: start: 20250719, end: 20250719

REACTIONS (3)
  - Drug abuse [Recovered/Resolved with Sequelae]
  - Sopor [Recovered/Resolved with Sequelae]
  - Pain threshold decreased [Recovered/Resolved with Sequelae]

NARRATIVE: CASE EVENT DATE: 20250719
